FAERS Safety Report 6003491-8 (Version None)
Quarter: 2008Q4

REPORT INFORMATION
  Report Type: 
  Country: None (occurrence: None)
  Receive Date: 20081216
  Receipt Date: 20081211
  Transmission Date: 20090506
  Serious: Yes (Other)
  Sender: FDA-Public Use
  Company Number: PT-BRISTOL-MYERS SQUIBB COMPANY-14441182

PATIENT
  Sex: Female

DRUGS (1)
  1. BUSPAR [Suspect]
     Indication: ANXIETY
     Dosage: ONE TAB IN THE MORNING
     Route: 048

REACTIONS (2)
  - ROAD TRAFFIC ACCIDENT [None]
  - VISION BLURRED [None]
